FAERS Safety Report 18713225 (Version 1)
Quarter: 2021Q1

REPORT INFORMATION
  Report Type: Spontaneous
  Country: CN (occurrence: CN)
  Receive Date: 20210107
  Receipt Date: 20210107
  Transmission Date: 20210419
  Serious: Yes (Other)
  Sender: FDA-Public Use
  Company Number: CN-ASTRAZENECA-2021A000639

PATIENT
  Age: 10581 Day
  Sex: Female
  Weight: 51 kg

DRUGS (1)
  1. NEXIUM [Suspect]
     Active Substance: ESOMEPRAZOLE MAGNESIUM
     Indication: GASTRIC PH INCREASED
     Route: 048
     Dates: start: 20201130, end: 20201209

REACTIONS (7)
  - Urticaria [Recovered/Resolved]
  - Headache [Recovered/Resolved]
  - Decreased appetite [Recovered/Resolved]
  - Hot flush [Recovered/Resolved]
  - Musculoskeletal pain [Recovered/Resolved]
  - Ear pain [Recovered/Resolved]
  - Somnolence [Recovered/Resolved]

NARRATIVE: CASE EVENT DATE: 20201202
